FAERS Safety Report 4657952-4 (Version None)
Quarter: 2005Q2

REPORT INFORMATION
  Report Type: 
  Country: None (occurrence: None)
  Receive Date: 20050510
  Receipt Date: 20050503
  Transmission Date: 20051028
  Serious: Yes (Hospitalization)
  Sender: FDA-Public Use
  Company Number: 2005SE02665

PATIENT
  Age: 58 Year
  Sex: Male

DRUGS (9)
  1. BLOPRESS [Suspect]
     Route: 048
  2. LITHIUM CARBONATE [Suspect]
     Route: 048
  3. FLUOX-BASAN [Suspect]
     Route: 048
  4. REMERON [Suspect]
     Route: 048
     Dates: start: 20050301
  5. TRUXAL [Suspect]
     Indication: SCHIZOAFFECTIVE DISORDER
     Route: 048
     Dates: start: 19950101
  6. THROMBACE NEO [Concomitant]
     Indication: MYOCARDIAL ISCHAEMIA
     Route: 048
  7. SIMCORA [Concomitant]
     Route: 048
  8. ESTROFEM [Concomitant]
     Route: 048
  9. ELTROXIN [Concomitant]
     Route: 048

REACTIONS (2)
  - AKATHISIA [None]
  - TREMOR [None]
